FAERS Safety Report 23630130 (Version 3)
Quarter: 2024Q2

REPORT INFORMATION
  Report Type: Report from Study
  Country: CA (occurrence: CA)
  Receive Date: 20240314
  Receipt Date: 20240514
  Transmission Date: 20240716
  Serious: Yes (Other)
  Sender: FDA-Public Use
  Company Number: CA-JNJFOC-20240319984

PATIENT
  Sex: Male

DRUGS (12)
  1. REMICADE [Suspect]
     Active Substance: INFLIXIMAB
     Indication: Neurosarcoidosis
     Route: 041
     Dates: start: 20220210
  2. REMICADE [Suspect]
     Active Substance: INFLIXIMAB
     Route: 041
     Dates: start: 20240430
  3. REMICADE [Suspect]
     Active Substance: INFLIXIMAB
     Route: 041
     Dates: start: 20220127, end: 20240506
  4. RAMIPRIL [Concomitant]
     Active Substance: RAMIPRIL
  5. GRAVOL [Concomitant]
     Active Substance: DIMENHYDRINATE
     Route: 042
  6. HYDROCHLOROTHIAZIDE [Concomitant]
     Active Substance: HYDROCHLOROTHIAZIDE
  7. AMLODIPINE [Concomitant]
     Active Substance: AMLODIPINE BESYLATE
  8. ROSUVASTATIN [Concomitant]
     Active Substance: ROSUVASTATIN
  9. GABAPENTIN [Concomitant]
     Active Substance: GABAPENTIN
  10. BACLOFEN [Concomitant]
     Active Substance: BACLOFEN
  11. PREDNISONE [Concomitant]
     Active Substance: PREDNISONE
  12. CITALOPRAM [Concomitant]
     Active Substance: CITALOPRAM\CITALOPRAM HYDROBROMIDE

REACTIONS (5)
  - Paraesthesia [Recovering/Resolving]
  - Muscle spasms [Recovering/Resolving]
  - Infusion related reaction [Not Recovered/Not Resolved]
  - Nausea [Recovering/Resolving]
  - Hyperhidrosis [Recovering/Resolving]
